FAERS Safety Report 7953681-X (Version None)
Quarter: 2011Q4

REPORT INFORMATION
  Report Type: 
  Country: None (occurrence: None)
  Receive Date: 20111202
  Receipt Date: 20111121
  Transmission Date: 20120403
  Serious: Yes (Other)
  Sender: FDA-Public Use
  Company Number: CA-JNJFOC-20110903185

PATIENT
  Sex: Male
  Weight: 98 kg

DRUGS (1)
  1. REMICADE [Suspect]
     Indication: COLITIS ULCERATIVE
     Route: 042
     Dates: start: 20101223

REACTIONS (6)
  - SKIN ULCER [None]
  - DEPRESSION [None]
  - IMPAIRED HEALING [None]
  - OPEN WOUND [None]
  - IRRITABILITY [None]
  - DECREASED EYE CONTACT [None]
